FAERS Safety Report 5143506-2 (Version None)
Quarter: 2006Q4

REPORT INFORMATION
  Report Type: 
  Country: None (occurrence: None)
  Receive Date: 20061103
  Receipt Date: 20061031
  Transmission Date: 20070319
  Serious: Yes (Death)
  Sender: FDA-Public Use
  Company Number: UG-GLAXOSMITHKLINE-B0445019A

PATIENT

DRUGS (2)
  1. ALBENDAZOLE [Suspect]
     Indication: HELMINTHIC INFECTION
     Dates: start: 20050701
  2. PLACEBO [Suspect]
     Indication: HELMINTHIC INFECTION
     Dates: start: 20050701

REACTIONS (1)
  - DEATH NEONATAL [None]
